FAERS Safety Report 15368325 (Version 5)
Quarter: 2018Q4

REPORT INFORMATION
  Report Type: Spontaneous
  Country: CA (occurrence: CA)
  Receive Date: 20180910
  Receipt Date: 20181108
  Transmission Date: 20190204
  Serious: Yes (Hospitalization)
  Sender: FDA-Public Use
  Company Number: CA-ACTELION-A-US2018-178477

PATIENT
  Age: 27 Year
  Sex: Female
  Weight: 85 kg

DRUGS (6)
  1. CARIPUL [Suspect]
     Active Substance: EPOPROSTENOL
     Indication: PULMONARY ARTERIAL HYPERTENSION
     Dosage: 30000 NG/ML, 2-10NG/KG/MIN
     Route: 042
     Dates: start: 20180820
  2. ADCIRCA [Interacting]
     Active Substance: TADALAFIL
     Indication: PRODUCT USED FOR UNKNOWN INDICATION
     Dosage: UNK
     Route: 065
     Dates: end: 20180914
  3. SILDENAFIL. [Concomitant]
     Active Substance: SILDENAFIL
  4. ASA [Concomitant]
     Active Substance: ASPIRIN
  5. RIVAROXABAN [Concomitant]
     Active Substance: RIVAROXABAN
  6. TYLENOL [Concomitant]
     Active Substance: ACETAMINOPHEN
     Dosage: UNK, PRN

REACTIONS (8)
  - Exposure during pregnancy [Unknown]
  - Premature baby [Unknown]
  - Decreased appetite [Not Recovered/Not Resolved]
  - Vomiting [Not Recovered/Not Resolved]
  - Drug interaction [Not Recovered/Not Resolved]
  - Live birth [Unknown]
  - Nausea [Not Recovered/Not Resolved]
  - Diarrhoea [Not Recovered/Not Resolved]

NARRATIVE: CASE EVENT DATE: 20180928
